FAERS Safety Report 20963300 (Version 2)
Quarter: 2022Q3

REPORT INFORMATION
  Report Type: Report from Study
  Country: US (occurrence: US)
  Receive Date: 20220615
  Receipt Date: 20220714
  Transmission Date: 20221026
  Serious: No
  Sender: FDA-Public Use
  Company Number: US-ASTELLAS-2022US021415

PATIENT
  Sex: Female

DRUGS (2)
  1. MIRABEGRON [Suspect]
     Active Substance: MIRABEGRON
     Indication: Hypertonic bladder
     Route: 048
     Dates: start: 20220605, end: 20220606
  2. OMEPRAZOLE [Concomitant]
     Active Substance: OMEPRAZOLE
     Indication: Hiatus hernia
     Dosage: UNK UNK, UNKNOWN FREQ.
     Route: 065

REACTIONS (3)
  - Vomiting [Recovered/Resolved]
  - Throat tightness [Recovered/Resolved]
  - Dysphagia [Recovered/Resolved]

NARRATIVE: CASE EVENT DATE: 20220606
